FAERS Safety Report 25895459 (Version 2)
Quarter: 2025Q4

REPORT INFORMATION
  Report Type: Report from Study
  Country: CO (occurrence: CO)
  Receive Date: 20251008
  Receipt Date: 20251014
  Transmission Date: 20260117
  Serious: Yes (Hospitalization, Other)
  Sender: ABBVIE
  Company Number: CO-ABBVIE-6491767

PATIENT
  Age: 62 Year
  Sex: Male

DRUGS (1)
  1. VENCLEXTA [Suspect]
     Active Substance: VENETOCLAX
     Indication: Chronic lymphocytic leukaemia
     Dosage: VENCLEXTA BOTTLE 100MG, PATIENTS WITH ADMINISTRATIVE PROBLEMS DO NOT SUCCEED.
     Route: 048
     Dates: start: 20231214, end: 20250930

REACTIONS (3)
  - Myocardial infarction [Unknown]
  - Cough [Recovered/Resolved]
  - Chest discomfort [Recovered/Resolved]

NARRATIVE: CASE EVENT DATE: 20250928
